FAERS Safety Report 4518870-5 (Version None)
Quarter: 2004Q4

REPORT INFORMATION
  Report Type: 
  Country: None (occurrence: None)
  Receive Date: 20041201
  Receipt Date: 20041119
  Transmission Date: 20050328
  Serious: No
  Sender: FDA-Public Use
  Company Number: 2004UW23911

PATIENT
  Age: 56 Year
  Sex: Male

DRUGS (1)
  1. CRESTOR [Suspect]
     Indication: BLOOD CHOLESTEROL INCREASED

REACTIONS (1)
  - CEREBROVASCULAR ACCIDENT [None]
